FAERS Safety Report 11419137 (Version 1)
Quarter: 2015Q3

REPORT INFORMATION
  Report Type: Spontaneous
  Country: US (occurrence: None)
  Receive Date: 20150825
  Receipt Date: 20150825
  Transmission Date: 20151125
  Serious: Yes (Life-Threatening, Hospitalization)
  Sender: FDA-Public Use
  Company Number: None

PATIENT
  Age: 88 Year
  Sex: Female
  Weight: 56.25 kg

DRUGS (13)
  1. ACIDOPHILUS [Concomitant]
     Active Substance: LACTOBACILLUS ACIDOPHILUS
  2. MELATONIN [Concomitant]
     Active Substance: MELATONIN
  3. AMITIZA [Suspect]
     Active Substance: LUBIPROSTONE
     Indication: CONSTIPATION
     Dosage: 1 PILL
     Route: 048
     Dates: start: 20150708, end: 20150730
  4. SENNA [Concomitant]
     Active Substance: SENNA LEAF\SENNOSIDES\SENNOSIDES A AND B
  5. GABAPENTIN. [Concomitant]
     Active Substance: GABAPENTIN
  6. LIDOCAINE PATCH [Concomitant]
     Active Substance: LIDOCAINE
  7. CALCITRIOL. [Concomitant]
     Active Substance: CALCITRIOL
  8. ULORIC [Concomitant]
     Active Substance: FEBUXOSTAT
  9. ZINC OXIDE. [Concomitant]
     Active Substance: ZINC OXIDE
  10. CYANOCOBALUM [Concomitant]
  11. OMEPRAZOLE. [Concomitant]
     Active Substance: OMEPRAZOLE
  12. FOLIC ACID. [Concomitant]
     Active Substance: FOLIC ACID
  13. TIMOLOL GEL [Concomitant]

REACTIONS (2)
  - Cardiac pacemaker insertion [None]
  - Bradycardia [None]

NARRATIVE: CASE EVENT DATE: 20150730
